FAERS Safety Report 24209997 (Version 1)
Quarter: 2024Q3

REPORT INFORMATION
  Report Type: Spontaneous
  Country: US (occurrence: US)
  Receive Date: 20240814
  Receipt Date: 20240814
  Transmission Date: 20241016
  Serious: No
  Sender: BRISTOL MYERS SQUIBB
  Company Number: US-BRISTOL-MYERS SQUIBB COMPANY-2024-128253

PATIENT
  Age: 74 Year
  Sex: Female
  Weight: 69.4 kg

DRUGS (2)
  1. ELIQUIS [Suspect]
     Active Substance: APIXABAN
     Indication: Thrombosis
     Dosage: DOSE: 10MG TWICE A DAY FOR 7 DAYS
     Route: 048
     Dates: start: 20240804
  2. ELIQUIS [Suspect]
     Active Substance: APIXABAN
     Indication: Aneurysm
     Dosage: DOSE : 10MG TWICE A DAY FOR 7 DAYS;     FREQ : 10 MG TWICE A DAY FOR 7 DAYS, THEN 5 MG TWICE A DAY
     Route: 048
     Dates: start: 202408

REACTIONS (2)
  - Urinary incontinence [Unknown]
  - Inability to afford medication [Unknown]

NARRATIVE: CASE EVENT DATE: 20240812
